FAERS Safety Report 6856267-3 (Version None)
Quarter: 2010Q3

REPORT INFORMATION
  Report Type: 
  Country: None (occurrence: None)
  Receive Date: 20100719
  Receipt Date: 20100706
  Transmission Date: 20110219
  Serious: Yes (Hospitalization, Other)
  Sender: FDA-Public Use
  Company Number: PHHY2010US36632

PATIENT
  Sex: Male

DRUGS (7)
  1. GLEEVEC [Suspect]
     Indication: CHRONIC MYELOID LEUKAEMIA
     Dosage: 400 MG DAILY
     Route: 048
  2. COLACE [Concomitant]
     Dosage: 300 MG DAILY
     Route: 048
  3. LYRICA [Concomitant]
     Dosage: 75 MG DAILY
     Route: 048
  4. LISINOPRIL [Concomitant]
     Dosage: 25 MG DAILY
     Route: 048
  5. FUROSEMIDE [Concomitant]
     Dosage: 40 MG DAILY
     Route: 048
  6. ASPIRIN [Concomitant]
     Dosage: 51 MG DAILY
     Route: 048
  7. LIPITOR [Concomitant]
     Dosage: 40 MG DAILY
     Route: 048

REACTIONS (5)
  - BLOOD CREATINE INCREASED [None]
  - CORONARY ARTERY DISEASE [None]
  - HAEMOGLOBIN DECREASED [None]
  - PLATELET COUNT DECREASED [None]
  - PRESYNCOPE [None]
